FAERS Safety Report 25524321 (Version 1)
Quarter: 2025Q3

REPORT INFORMATION
  Report Type: Spontaneous
  Country: US (occurrence: None)
  Receive Date: 20250703
  Receipt Date: 20250703
  Transmission Date: 20251020
  Serious: Yes (Hospitalization, Other)
  Sender: FDA-CTU
  Company Number: None

PATIENT
  Age: 70 Year
  Sex: Male
  Weight: 102 kg

DRUGS (3)
  1. CARVYKTI [Suspect]
     Active Substance: CILTACABTAGENE AUTOLEUCEL
     Indication: Plasma cell myeloma refractory
     Route: 042
     Dates: start: 20241015, end: 20241015
  2. FLUDARABINE [Suspect]
     Active Substance: FLUDARABINE PHOSPHATE
  3. CYCLOPHOSPHAMIDE [Suspect]
     Active Substance: CYCLOPHOSPHAMIDE

REACTIONS (11)
  - Cytokine release syndrome [None]
  - Diarrhoea [None]
  - Weight decreased [None]
  - Pneumoperitoneum [None]
  - Pneumatosis intestinalis [None]
  - Enterocolitis [None]
  - Large intestine perforation [None]
  - Tachycardia [None]
  - Bacteraemia [None]
  - Lactic acidosis [None]
  - Hypotension [None]

NARRATIVE: CASE EVENT DATE: 20250703
